FAERS Safety Report 9115344 (Version 1)
Quarter: 2013Q1

REPORT INFORMATION
  Report Type: Spontaneous
  Country: US (occurrence: None)
  Receive Date: 20130221
  Receipt Date: 20130221
  Transmission Date: 20140127
  Serious: No
  Sender: FDA-Public Use
  Company Number: None

PATIENT
  Age: 50 Year
  Sex: Female

DRUGS (1)
  1. MONTELUKAST [Suspect]
     Indication: ASTHMA
     Route: 048

REACTIONS (2)
  - Rash [None]
  - Pain [None]
